FAERS Safety Report 12479819 (Version 1)
Quarter: 2016Q2

REPORT INFORMATION
  Report Type: Spontaneous
  Country: US (occurrence: None)
  Receive Date: 20160617
  Receipt Date: 20160617
  Transmission Date: 20160815
  Serious: Yes (Other)
  Sender: FDA-Public Use
  Company Number: None

PATIENT
  Age: 60 Year
  Sex: Female

DRUGS (1)
  1. ENBREL [Suspect]
     Active Substance: ETANERCEPT
     Route: 058
     Dates: start: 20151214, end: 20160616

REACTIONS (8)
  - Hypoaesthesia [None]
  - No therapeutic response [None]
  - Discomfort [None]
  - Dyspnoea [None]
  - Anxiety [None]
  - Therapy cessation [None]
  - Dizziness [None]
  - Paraesthesia [None]

NARRATIVE: CASE EVENT DATE: 20160525
